FAERS Safety Report 8992385 (Version 1)
Quarter: 2012Q4

REPORT INFORMATION
  Report Type: 
  Country: US (occurrence: US)
  Receive Date: 20121231
  Receipt Date: 20121231
  Transmission Date: 20130627
  Serious: Yes (Other)
  Sender: FDA-Public Use
  Company Number: CHPA2012US025622

PATIENT
  Age: 59 Year
  Sex: Female

DRUGS (1)
  1. EXCEDRIN MIGRAINE [Suspect]
     Indication: MIGRAINE
     Dosage: up to 4 at a time
     Route: 048
     Dates: start: 1998, end: 201201

REACTIONS (3)
  - Petit mal epilepsy [Recovered/Resolved]
  - Visual impairment [Unknown]
  - Overdose [Unknown]
